FAERS Safety Report 6894667-6 (Version None)
Quarter: 2010Q3

REPORT INFORMATION
  Report Type: 
  Country: None (occurrence: None)
  Receive Date: 20100802
  Receipt Date: 20100722
  Transmission Date: 20110219
  Serious: Yes (Other)
  Sender: FDA-Public Use
  Company Number: US-SANOFI-AVENTIS-2010SA028477

PATIENT
  Age: 75 Year
  Sex: Female
  Weight: 53.1 kg

DRUGS (11)
  1. MULTAQ [Suspect]
     Indication: ATRIAL FIBRILLATION
     Route: 048
     Dates: start: 20091216, end: 20091223
  2. COUMADIN [Concomitant]
     Indication: ATRIAL FIBRILLATION
     Dates: start: 20091201
  3. LISINOPRIL [Concomitant]
     Indication: HYPERTENSION
  4. HYDROCHLOROTHIAZIDE [Concomitant]
  5. ATIVAN [Concomitant]
     Indication: ANXIETY
     Dates: start: 20091201
  6. PROTONIX [Concomitant]
  7. CREON ^DUPHAR^ [Concomitant]
  8. FLONASE [Concomitant]
  9. ADVAIR DISKUS 100/50 [Concomitant]
  10. PRED FORTE [Concomitant]
  11. MAALOX [Concomitant]

REACTIONS (3)
  - ATRIAL FIBRILLATION [None]
  - ATRIOVENTRICULAR BLOCK FIRST DEGREE [None]
  - BRADYCARDIA [None]
